FAERS Safety Report 5513763-9 (Version None)
Quarter: 2007Q4

REPORT INFORMATION
  Report Type: 
  Country: None (occurrence: None)
  Receive Date: 20071113
  Receipt Date: 20071105
  Transmission Date: 20080405
  Serious: Yes (Congenital Anomaly, Other)
  Sender: FDA-Public Use
  Company Number: PHMT2006CA01882

PATIENT
  Sex: Female

DRUGS (1)
  1. TEGRETOL [Suspect]
     Dosage: MATERNAL DOSE: 400 MG PER DAY
     Route: 064

REACTIONS (2)
  - CONGENITAL HYPOTHYROIDISM [None]
  - DRUG EXPOSURE DURING PREGNANCY [None]
